FAERS Safety Report 23195881 (Version 1)
Quarter: 2023Q4

REPORT INFORMATION
  Report Type: Report from Study
  Country: CN (occurrence: CN)
  Receive Date: 20231117
  Receipt Date: 20231117
  Transmission Date: 20240110
  Serious: Yes (Other)
  Sender: FDA-Public Use
  Company Number: CN-002147023-NVSC2023CN243297

PATIENT
  Sex: Male

DRUGS (1)
  1. INCLISIRAN [Suspect]
     Active Substance: INCLISIRAN
     Indication: Hyperlipidaemia
     Dosage: 284 MG, OTHER (AFTER THE FIRST ADMINISTRATION, THE DRUG WAS GIVEN AGAIN AT 3 MONTHS, AND THEN ONCE E
     Route: 058
     Dates: start: 20231027

REACTIONS (5)
  - Renal impairment [Unknown]
  - Blood glucose increased [Unknown]
  - Liver function test abnormal [Unknown]
  - Blood triglycerides increased [Unknown]
  - Blood cholesterol decreased [Unknown]
